FAERS Safety Report 13387685 (Version 1)
Quarter: 2017Q1

REPORT INFORMATION
  Report Type: Spontaneous
  Country: US (occurrence: US)
  Receive Date: 20170330
  Receipt Date: 20170330
  Transmission Date: 20170429
  Serious: No
  Sender: FDA-Public Use
  Company Number: US-HORIZON-RAV-0090-2017

PATIENT
  Age: 24 Month
  Sex: Male

DRUGS (1)
  1. RAVICTI [Suspect]
     Active Substance: GLYCEROL PHENYLBUTYRATE
     Indication: ORNITHINE TRANSCARBAMOYLASE DEFICIENCY
     Dosage: 1.5 ML BID AND 1 ML ADDITIONAL IN THE EVENING

REACTIONS (1)
  - Amino acid level decreased [Unknown]

NARRATIVE: CASE EVENT DATE: 20170110
